FAERS Safety Report 9815704 (Version 1)
Quarter: 2014Q1

REPORT INFORMATION
  Report Type: Spontaneous
  Country: GB (occurrence: None)
  Receive Date: 20140110
  Receipt Date: 20140110
  Transmission Date: 20141002
  Serious: Yes (Other)
  Sender: FDA-Public Use
  Company Number: AUR-APL-2014-00139

PATIENT
  Age: 21 Year
  Sex: Female
  Weight: 84.36 kg

DRUGS (8)
  1. PAROXETINE [Suspect]
     Indication: POST-TRAUMATIC STRESS DISORDER
     Route: 048
     Dates: start: 20130311
  2. PAROXETINE [Suspect]
     Route: 048
     Dates: start: 20130311
  3. DOMPERIDONE (DOMPERIDONE) [Concomitant]
  4. IRON (IRON) [Concomitant]
  5. MEBEVIRINE (MEBEVIRINE) [Concomitant]
  6. METOCLOPRAMIDE (METOCLOPRAMIDE) [Concomitant]
  7. NORTRIPTYLINE HYDROCHLORIDE (NORTRIPTYLINE HYDROCHLORIDE) [Concomitant]
  8. OMEPRAZOLE SODIUM (OMEPRAZOLE SODIUM) [Concomitant]

REACTIONS (3)
  - Sudden onset of sleep [None]
  - Fatigue [None]
  - Impaired work ability [None]
